FAERS Safety Report 8020186-X (Version None)
Quarter: 2012Q1

REPORT INFORMATION
  Report Type: 
  Country: None (occurrence: None)
  Receive Date: 20120103
  Receipt Date: 20111230
  Transmission Date: 20120608
  Serious: Yes (Death)
  Sender: FDA-Public Use
  Company Number: CHPA2011US018909

PATIENT
  Age: 65 Year
  Sex: Female

DRUGS (3)
  1. ORENCIA [Suspect]
     Indication: PAIN IN EXTREMITY
     Dosage: UNK, ONCE MONTHLY
     Route: 042
  2. MOBIC [Concomitant]
     Indication: PAIN IN EXTREMITY
     Route: 042
  3. VOLTAREN [Suspect]
     Indication: ARTHRITIS
     Dosage: UNK, UNK
     Route: 061
     Dates: start: 20110101, end: 20110101

REACTIONS (2)
  - FATIGUE [None]
  - MYOCARDIAL INFARCTION [None]
